FAERS Safety Report 25490583 (Version 1)
Quarter: 2025Q2

REPORT INFORMATION
  Report Type: Spontaneous
  Country: PT (occurrence: PT)
  Receive Date: 20250627
  Receipt Date: 20250627
  Transmission Date: 20250717
  Serious: Yes (Death, Hospitalization, Other)
  Sender: RANBAXY
  Company Number: PT-SUN PHARMACEUTICAL INDUSTRIES INC-2025R1-513709

PATIENT
  Age: 68 Year
  Sex: Male

DRUGS (1)
  1. CARBOPLATIN [Suspect]
     Active Substance: CARBOPLATIN
     Indication: Oropharyngeal squamous cell carcinoma
     Route: 065

REACTIONS (6)
  - Fungal infection [Fatal]
  - Condition aggravated [Fatal]
  - Disease recurrence [Unknown]
  - Toxicity to various agents [Unknown]
  - Odynophagia [Unknown]
  - Ulcer [Unknown]
